FAERS Safety Report 19942433 (Version 2)
Quarter: 2021Q4

REPORT INFORMATION
  Report Type: Report from Study
  Country: CA (occurrence: CA)
  Receive Date: 20211012
  Receipt Date: 20211026
  Transmission Date: 20220303
  Serious: Yes (Other)
  Sender: FDA-Public Use
  Company Number: CA-JNJFOC-20210911722

PATIENT
  Age: 44 Year
  Sex: Female

DRUGS (1)
  1. REMICADE [Suspect]
     Active Substance: INFLIXIMAB
     Indication: Crohn^s disease
     Dosage: ON 20-OCT-2021, THE PATIENT RECEIVED 5TH 300 MILLIGRAMS INFLIXIMAB INFUSION AND PARTIAL HARVEY-BRADS
     Route: 042
     Dates: start: 20210423

REACTIONS (5)
  - Hysterectomy [Unknown]
  - Post procedural haematoma [Unknown]
  - Post procedural infection [Unknown]
  - General physical health deterioration [Unknown]
  - Abdominal pain [Unknown]

NARRATIVE: CASE EVENT DATE: 20210101
